FAERS Safety Report 4943742-1 (Version None)
Quarter: 2006Q1

REPORT INFORMATION
  Report Type: 
  Country: None (occurrence: None)
  Receive Date: 20060301
  Receipt Date: 20060228
  Transmission Date: 20060701
  Serious: Yes (Hospitalization)
  Sender: FDA-Public Use
  Company Number: 2006026620

PATIENT
  Age: 73 Year
  Sex: Female

DRUGS (1)
  1. XALATAN [Suspect]
     Indication: INTRAOCULAR PRESSURE DECREASED
     Dosage: DAILY, INTRAOCULAR
     Route: 031

REACTIONS (2)
  - BLEPHARAL PIGMENTATION [None]
  - FRACTURE [None]
